FAERS Safety Report 7220215-7 (Version None)
Quarter: 2011Q1

REPORT INFORMATION
  Report Type: 
  Country: None (occurrence: None)
  Receive Date: 20110111
  Receipt Date: 20110105
  Transmission Date: 20110831
  Serious: Yes (Hospitalization)
  Sender: FDA-Public Use
  Company Number: US-MERCK-1001USA01032

PATIENT
  Age: 80 Year
  Sex: Male

DRUGS (13)
  1. JANUVIA [Suspect]
     Indication: DIABETES MELLITUS
     Route: 048
     Dates: start: 20090201, end: 20100111
  2. METFORMIN [Concomitant]
     Route: 065
  3. ZETIA [Concomitant]
     Route: 048
  4. SYNTHROID [Concomitant]
     Route: 065
  5. JANUVIA [Suspect]
     Route: 048
     Dates: start: 20061001, end: 20071001
  6. JANUMET [Suspect]
     Route: 048
     Dates: start: 20071001, end: 20090201
  7. PROCARDIA [Concomitant]
     Route: 065
  8. DETROL [Concomitant]
     Route: 065
  9. SINEMET [Concomitant]
     Route: 065
  10. HYDROCHLOROTHIAZIDE [Concomitant]
     Route: 065
  11. MINIPRESS [Concomitant]
     Route: 065
  12. DIOVAN [Concomitant]
     Route: 065
  13. INSULIN [Concomitant]
     Route: 065

REACTIONS (3)
  - PEMPHIGOID [None]
  - RASH [None]
  - HERPES ZOSTER [None]
